FAERS Safety Report 7270330-7 (Version None)
Quarter: 2011Q1

REPORT INFORMATION
  Report Type: 
  Country: None (occurrence: None)
  Receive Date: 20110202
  Receipt Date: 20110124
  Transmission Date: 20110831
  Serious: No
  Sender: FDA-Public Use
  Company Number: US-BAYER-2011-008802

PATIENT
  Sex: Female

DRUGS (1)
  1. MIRENA [Suspect]
     Route: 015

REACTIONS (5)
  - AMENORRHOEA [None]
  - POLLAKIURIA [None]
  - VAGINAL HAEMORRHAGE [None]
  - DYSPEPSIA [None]
  - PREGNANCY WITH CONTRACEPTIVE DEVICE [None]
